FAERS Safety Report 19865282 (Version 7)
Quarter: 2022Q1

REPORT INFORMATION
  Report Type: Report from Study
  Country: US (occurrence: US)
  Receive Date: 20210922
  Receipt Date: 20220125
  Transmission Date: 20220423
  Serious: No
  Sender: FDA-Public Use
  Company Number: NVSC2021US213592

PATIENT
  Age: 33 Year
  Sex: Female

DRUGS (2)
  1. KESIMPTA [Suspect]
     Active Substance: OFATUMUMAB
     Indication: Multiple sclerosis
     Dosage: UNK, UNKNOWN
     Route: 058
     Dates: start: 20210721
  2. KESIMPTA [Suspect]
     Active Substance: OFATUMUMAB
     Dosage: UNK
     Route: 058
     Dates: start: 20210729

REACTIONS (12)
  - Gastroenteritis viral [Unknown]
  - Somnolence [Unknown]
  - Abdominal discomfort [Unknown]
  - Pain [Not Recovered/Not Resolved]
  - Sleep disorder [Unknown]
  - Fatigue [Unknown]
  - Stress [Unknown]
  - Migraine [Unknown]
  - Pain in extremity [Unknown]
  - Feeling abnormal [Unknown]
  - Amenorrhoea [Not Recovered/Not Resolved]
  - Drug ineffective [Unknown]

NARRATIVE: CASE EVENT DATE: 20210917
